FAERS Safety Report 9723812 (Version 2)
Quarter: 2013Q4

REPORT INFORMATION
  Report Type: Spontaneous
  Country: AU (occurrence: AU)
  Receive Date: 20131202
  Receipt Date: 20131202
  Transmission Date: 20140711
  Serious: Yes (Hospitalization)
  Sender: FDA-Public Use
  Company Number: AU-PFIZER INC-2013336565

PATIENT
  Age: 65 Year
  Sex: Female

DRUGS (3)
  1. XANAX [Suspect]
     Indication: VERTIGO
     Dosage: UNK
  2. XANAX [Interacting]
     Indication: ANXIETY
  3. XANAX [Interacting]
     Indication: PANIC DISORDER

REACTIONS (1)
  - Drug interaction [Unknown]
